FAERS Safety Report 4527638-5 (Version None)
Quarter: 2004Q4

REPORT INFORMATION
  Report Type: 
  Country: None (occurrence: None)
  Receive Date: 20041124
  Receipt Date: 20040607
  Transmission Date: 20050328
  Serious: Yes (Other)
  Sender: FDA-Public Use
  Company Number: 2004037874

PATIENT
  Age: 72 Year
  Sex: Female
  Weight: 61.2356 kg

DRUGS (3)
  1. TIKOSYN [Suspect]
     Indication: ATRIAL FIBRILLATION
     Dosage: ORAL
     Route: 048
     Dates: start: 19980101, end: 20040101
  2. WARFARIN SODIUM [Concomitant]
  3. VITAMINS (VITAMINS) [Concomitant]

REACTIONS (4)
  - ATRIAL FIBRILLATION [None]
  - DYSGEUSIA [None]
  - HYPOTHYROIDISM [None]
  - OEDEMA PERIPHERAL [None]
